FAERS Safety Report 7994948-9 (Version None)
Quarter: 2011Q4

REPORT INFORMATION
  Report Type: 
  Country: None (occurrence: None)
  Receive Date: 20111220
  Receipt Date: 20111214
  Transmission Date: 20120403
  Serious: Yes (Other)
  Sender: FDA-Public Use
  Company Number: US-ROCHE-794392

PATIENT
  Sex: Male
  Weight: 77.18 kg

DRUGS (4)
  1. ACCUTANE [Suspect]
     Route: 048
     Dates: start: 20000601, end: 20001001
  2. ACCUTANE [Suspect]
     Indication: ACNE
     Route: 048
     Dates: start: 19970101, end: 19970630
  3. ALLERGY SHOTS [Concomitant]
  4. ALBUTEROL INHALER [Concomitant]
     Indication: ASTHMA

REACTIONS (3)
  - INFLAMMATORY BOWEL DISEASE [None]
  - COLITIS ULCERATIVE [None]
  - ANXIETY [None]
